FAERS Safety Report 9094361 (Version 1)
Quarter: 2012Q4

REPORT INFORMATION
  Report Type: Spontaneous
  Country: CN (occurrence: None)
  Receive Date: 20120907
  Receipt Date: 20120907
  Transmission Date: 20130627
  Serious: Yes (Other)
  Sender: FDA-Public Use
  Company Number: DSA_59201_2012

PATIENT

DRUGS (8)
  1. FLUOROURACIL [Suspect]
     Indication: GASTRIC CANCER
     Dosage: (500 mg/m2/day by micro-pump for 22 hour on days 1-5; repeated every 21 days Intravenous (not otherwise specified))
(Unknown)
  2. CALCIUM FOLINATE [Suspect]
     Dosage: (100 mg/m2/day in normal saline for 2 hours on days 1-5; repeated every 21 days Intravenous (not otherwise specified))
(Unknown)
  3. DOCETAXEL [Concomitant]
     Dosage: (75 mg/m2  in normal saline by 1 hour on day 1, repeated every 21 days Intravenous (not otherwise specified))
(Unknown)
  4. CISPLATIN [Suspect]
     Dosage: (25 mg/m2 in normal saline on days 1-3 with 1 hour hydration, repeated every 21 days Intravenous (not otherwise specified))
(Unknown)
  5. DEXAMETHASONE [Concomitant]
  6. PROMETHAZINE [Concomitant]
  7. RANITIDINE [Concomitant]
  8. NORMAL SALINE [Concomitant]

REACTIONS (2)
  - Drug resistance [None]
  - Bone marrow failure [None]
